FAERS Safety Report 5679638-X (Version None)
Quarter: 2008Q1

REPORT INFORMATION
  Report Type: 
  Country: None (occurrence: None)
  Receive Date: 20080321
  Receipt Date: 20080320
  Transmission Date: 20080703
  Serious: Yes (Hospitalization)
  Sender: FDA-Public Use
  Company Number: 2008AL001533

PATIENT
  Age: 45 Year
  Sex: Male

DRUGS (3)
  1. DESIPRAMINE HCL [Suspect]
     Indication: PHANTOM PAIN
     Dosage: 75 MG; QD; PO
     Route: 048
  2. VENLAFAXINE HCL [Concomitant]
  3. QUETIAPINE FUMARATE [Concomitant]

REACTIONS (24)
  - ABNORMAL BEHAVIOUR [None]
  - ABNORMAL SLEEP-RELATED EVENT [None]
  - AFFECTIVE DISORDER [None]
  - AGITATION [None]
  - ANGER [None]
  - ANXIETY [None]
  - DECREASED APPETITE [None]
  - DECREASED INTEREST [None]
  - DEPRESSED MOOD [None]
  - DEPRESSION [None]
  - FATIGUE [None]
  - FLIGHT OF IDEAS [None]
  - HALLUCINATION, VISUAL [None]
  - HOMICIDAL IDEATION [None]
  - INSOMNIA [None]
  - IRRITABILITY [None]
  - LOGORRHOEA [None]
  - MANIA [None]
  - NIGHTMARE [None]
  - PANIC ATTACK [None]
  - PERSEVERATION [None]
  - RAPID EYE MOVEMENTS SLEEP ABNORMAL [None]
  - SLEEP APNOEA SYNDROME [None]
  - SLEEP DISORDER [None]
